FAERS Safety Report 6728441-8 (Version None)
Quarter: 2010Q2

REPORT INFORMATION
  Report Type: 
  Country: None (occurrence: None)
  Receive Date: 20100517
  Receipt Date: 20100504
  Transmission Date: 20101027
  Serious: Yes (Death, Other)
  Sender: FDA-Public Use
  Company Number: US-ELI_LILLY_AND_COMPANY-US201005000526

PATIENT
  Sex: Female

DRUGS (5)
  1. FORTEO [Suspect]
     Indication: OSTEOPOROSIS
     Dosage: 20 UG, DAILY (1/D)
     Dates: start: 20090101
  2. ATENOLOL [Concomitant]
  3. SYNTHROID [Concomitant]
  4. OXYTROL [Concomitant]
  5. PRAVACHOL [Concomitant]

REACTIONS (7)
  - ABDOMINAL PAIN [None]
  - GROIN PAIN [None]
  - HEPATIC NEOPLASM MALIGNANT [None]
  - LUNG NEOPLASM MALIGNANT [None]
  - MALAISE [None]
  - NEOPLASM MALIGNANT [None]
  - PANCREATIC CARCINOMA [None]
